FAERS Safety Report 6540382-8 (Version None)
Quarter: 2010Q1

REPORT INFORMATION
  Report Type: 
  Country: None (occurrence: None)
  Receive Date: 20100113
  Receipt Date: 20091231
  Transmission Date: 20100710
  Serious: No
  Sender: FDA-Public Use
  Company Number: DSU-2009-03121

PATIENT
  Age: 71 Year
  Sex: Female
  Weight: 76.6579 kg

DRUGS (9)
  1. WELCHOL [Suspect]
     Indication: HYPERLIPIDAEMIA
     Dosage: 3750 MG (3750 MG, QD) PER ORAL
     Route: 048
     Dates: start: 20090101, end: 20090101
  2. ULTRAM (TRAMADOL HYDROCHLORIDE) (TRAMADOL HYDROCHLORIDE) [Concomitant]
  3. XANAX (ALPRAZOLAM) (ALPRAZOLAM) [Concomitant]
  4. PROZAC [Concomitant]
  5. SYNTHROID (LEVOTHYROXINE SODIUM) (112 MICRGRAM) [Concomitant]
  6. HYZAAR (HYDROCHLOROTHIAZIDE, LOSARTAN POTASSIUM) (HYDROCHLOROTHIAZIDE, [Concomitant]
  7. CELEBREX (CELECOXIB) (CELEXOXIB) [Concomitant]
  8. MAGNESIUM (MAGNESIUM) (MAGNESIUM) [Concomitant]
  9. ACIDOPHILUS (LACTOBACILLUS ACIDOPHILUS) [Concomitant]

REACTIONS (2)
  - DYSPHAGIA [None]
  - FOREIGN BODY [None]
